FAERS Safety Report 8212794-8 (Version None)
Quarter: 2012Q1

REPORT INFORMATION
  Report Type: 
  Country: None (occurrence: None)
  Receive Date: 20120315
  Receipt Date: 20120306
  Transmission Date: 20120608
  Serious: Yes (Death, Hospitalization)
  Sender: FDA-Public Use
  Company Number: DE-BRISTOL-MYERS SQUIBB COMPANY-16436727

PATIENT
  Age: 61 Year
  Sex: Male
  Weight: 64 kg

DRUGS (10)
  1. CISPLATIN [Suspect]
     Indication: NON-SMALL CELL LUNG CANCER
     Dosage: 3RD INF 14JUN10
     Route: 042
     Dates: start: 20100521
  2. VOLTAREN [Concomitant]
  3. CYANOCOBALAMIN [Concomitant]
     Dates: start: 20100414, end: 20100514
  4. PEMETREXED DISODIUM [Suspect]
     Indication: NON-SMALL CELL LUNG CANCER
     Dosage: 3RD INF 14JUN10
     Route: 042
     Dates: start: 20100521
  5. FOLSAN [Concomitant]
     Dates: start: 20100520
  6. ACETYLCYSTEINE [Concomitant]
  7. NEXIUM [Concomitant]
     Dates: start: 20100421
  8. NECITUMUMAB [Suspect]
     Indication: NON-SMALL CELL LUNG CANCER
     Dosage: LIQ
     Route: 042
     Dates: start: 20100520
  9. PREDNISONE TAB [Concomitant]
     Dates: start: 20100424
  10. AMPICILLIN AND SULBACTAM [Concomitant]
     Dates: start: 20100510, end: 20100515

REACTIONS (11)
  - CARDIAC ARREST [None]
  - TACHYCARDIA [None]
  - CHOLECYSTITIS INFECTIVE [None]
  - INTRA-ABDOMINAL HAEMORRHAGE [None]
  - INTESTINAL GANGRENE [None]
  - INTESTINAL INFARCTION [None]
  - DEHYDRATION [None]
  - BLOOD LACTATE DEHYDROGENASE INCREASED [None]
  - SPLENIC INFARCTION [None]
  - SEPSIS [None]
  - HYPOTENSION [None]
